FAERS Safety Report 5429113-2 (Version None)
Quarter: 2007Q3

REPORT INFORMATION
  Report Type: 
  Country: None (occurrence: None)
  Receive Date: 20070829
  Receipt Date: 20070820
  Transmission Date: 20080115
  Serious: Yes (Hospitalization)
  Sender: FDA-Public Use
  Company Number: US-JNJFOC-20070701933

PATIENT
  Sex: Male
  Weight: 82.1 kg

DRUGS (2)
  1. REMICADE [Suspect]
     Indication: RHEUMATOID ARTHRITIS
     Dosage: ^WAS LAST INFUSION^
     Route: 042
  2. PREDNISONE TAB [Concomitant]

REACTIONS (3)
  - HEPATITIS ACUTE [None]
  - MENTAL STATUS CHANGES [None]
  - RENAL FAILURE [None]
